FAERS Safety Report 25967346 (Version 2)
Quarter: 2025Q4

REPORT INFORMATION
  Report Type: Spontaneous
  Country: CA (occurrence: CA)
  Receive Date: 20251028
  Receipt Date: 20251113
  Transmission Date: 20260118
  Serious: Yes (Hospitalization, Other)
  Sender: CELLTRION
  Company Number: CA-CELLTRION INC.-2025CA017685

PATIENT

DRUGS (6)
  1. INFLIXIMAB [Suspect]
     Active Substance: INFLIXIMAB
     Indication: Colitis ulcerative
     Dosage: LOADING - 10 MG/KG
     Route: 042
     Dates: start: 20250602
  2. INFLIXIMAB [Suspect]
     Active Substance: INFLIXIMAB
     Dosage: MAINTENANCE - 10 MG/KG - EVERY 8 WEEKS
     Route: 042
     Dates: start: 20250602
  3. INFLIXIMAB [Suspect]
     Active Substance: INFLIXIMAB
     Dosage: LOADING - 10 MG/KG
     Route: 042
     Dates: start: 20250602
  4. INFLIXIMAB [Suspect]
     Active Substance: INFLIXIMAB
     Dosage: MAINTENANCE - 600 MG IV Q8WEEKS
     Route: 042
     Dates: start: 20250602
  5. INFLIXIMAB [Suspect]
     Active Substance: INFLIXIMAB
     Dosage: 600 MG IV Q8WEEKS
     Route: 042
     Dates: start: 20250828
  6. INFLIXIMAB [Suspect]
     Active Substance: INFLIXIMAB
     Dosage: 600 MG IV Q8WEEKS
     Route: 042
     Dates: start: 20251104

REACTIONS (5)
  - Hip arthroplasty [Unknown]
  - Knee arthroplasty [Unknown]
  - Intentional dose omission [Unknown]
  - Off label use [Unknown]
  - Inappropriate schedule of product administration [Unknown]

NARRATIVE: CASE EVENT DATE: 20251016
